FAERS Safety Report 8273168-7 (Version None)
Quarter: 2012Q2

REPORT INFORMATION
  Report Type: 
  Country: None (occurrence: None)
  Receive Date: 20120411
  Receipt Date: 20120405
  Transmission Date: 20120825
  Serious: Yes (Other)
  Sender: FDA-Public Use
  Company Number: US-JNJFOC-20120403359

PATIENT
  Age: 59 Year
  Sex: Female

DRUGS (6)
  1. TOPROL-XL [Concomitant]
  2. ADVAIR DISKUS 100/50 [Concomitant]
  3. HYZAAR [Concomitant]
  4. MEDROL [Suspect]
     Indication: PRODUCT USED FOR UNKNOWN INDICATION
     Route: 065
  5. LEVAQUIN [Suspect]
     Indication: BRONCHITIS
     Route: 048
     Dates: start: 20100614
  6. ALLEGRA [Concomitant]

REACTIONS (1)
  - TENOSYNOVITIS [None]
